FAERS Safety Report 6272596-9 (Version None)
Quarter: 2009Q3

REPORT INFORMATION
  Report Type: 
  Country: None (occurrence: None)
  Receive Date: 20090713
  Receipt Date: 20090223
  Transmission Date: 20100115
  Serious: Yes (Other)
  Sender: FDA-Public Use
  Company Number: 616580

PATIENT
  Age: 47 Year
  Sex: Female
  Weight: 40.8 kg

DRUGS (1)
  1. BONIVA [Suspect]
     Indication: OSTEOPENIA
     Dosage: 1 PER MONTH  ORAL
     Route: 048
     Dates: start: 20080601, end: 20090204

REACTIONS (2)
  - SKIN ULCER [None]
  - STAPHYLOCOCCAL INFECTION [None]
